FAERS Safety Report 7656832-X (Version None)
Quarter: 2011Q3

REPORT INFORMATION
  Report Type: 
  Country: None (occurrence: None)
  Receive Date: 20110804
  Receipt Date: 20110729
  Transmission Date: 20111222
  Serious: Yes (Other)
  Sender: FDA-Public Use
  Company Number: HU-PFIZER INC-2011174703

PATIENT
  Age: 71 Year
  Sex: Female
  Weight: 57 kg

DRUGS (5)
  1. HUMULIN N [Concomitant]
     Dosage: UNK
     Dates: start: 19950101
  2. HUMULIN R [Concomitant]
     Dosage: UNK
     Dates: start: 19950101
  3. THIOGAMMA [Suspect]
     Dosage: UNK
     Dates: start: 20110501, end: 20110501
  4. RAMIPRIL [Concomitant]
     Dosage: UNK
     Dates: start: 20070101
  5. LYRICA [Suspect]
     Dosage: 75 MG, 1X/DAY
     Dates: start: 20110501, end: 20110502

REACTIONS (1)
  - EPILEPSY [None]
